FAERS Safety Report 8829811 (Version 2)
Quarter: 2012Q4

REPORT INFORMATION
  Report Type: 
  Country: DE (occurrence: JP)
  Receive Date: 20121008
  Receipt Date: 20121105
  Transmission Date: 20130627
  Serious: Yes (Life-Threatening, Other)
  Sender: FDA-Public Use
  Company Number: JP-BRISTOL-MYERS SQUIBB COMPANY-16946477

PATIENT
  Age: 73 Year
  Sex: Male
  Weight: 60 kg

DRUGS (4)
  1. ERBITUX SOLN FOR INF 5MG/ML [Suspect]
     Indication: COLON CANCER
     Route: 041
     Dates: start: 20100825, end: 20100825
  2. IRINOTECAN [Concomitant]
     Indication: COLON CANCER
     Dosage: inf
     Route: 041
     Dates: start: 20100113, end: 20101222
  3. 5-FLUOROURACIL [Concomitant]
     Indication: COLON CANCER
     Dosage: inf
     Route: 041
     Dates: start: 20100113, end: 20101222
  4. LEUCOVORIN [Concomitant]
     Indication: COLON CANCER
     Route: 041
     Dates: start: 20100113, end: 20101222

REACTIONS (2)
  - Suicidal ideation [Recovering/Resolving]
  - Asthenia [Recovering/Resolving]
